FAERS Safety Report 7086320-3 (Version None)
Quarter: 2010Q4

REPORT INFORMATION
  Report Type: 
  Country: None (occurrence: None)
  Receive Date: 20101105
  Receipt Date: 20101101
  Transmission Date: 20110411
  Serious: Yes (Other)
  Sender: FDA-Public Use
  Company Number: DE-NAPPMUNDI-DEU-2010-0006676

PATIENT
  Age: 52 Year
  Sex: Male

DRUGS (5)
  1. OXYGESIC [Suspect]
     Indication: PAIN
     Dosage: 120 MG, BID
     Route: 048
     Dates: start: 19980101
  2. CYMBALTA [Concomitant]
  3. LAMOTRIGINE [Concomitant]
  4. ENAPLUS [Concomitant]
  5. MEPROLOL [Concomitant]

REACTIONS (3)
  - CONSTIPATION [None]
  - EPILEPSY [None]
  - ERECTILE DYSFUNCTION [None]
